FAERS Safety Report 23464450 (Version 2)
Quarter: 2024Q1

REPORT INFORMATION
  Report Type: Report from Study
  Country: US (occurrence: US)
  Receive Date: 20240201
  Receipt Date: 20240221
  Transmission Date: 20240410
  Serious: Yes (Hospitalization)
  Sender: FDA-Public Use
  Company Number: US-ORPHANEU-2024000575

PATIENT

DRUGS (1)
  1. ISTURISA [Suspect]
     Active Substance: OSILODROSTAT PHOSPHATE
     Indication: Cushing^s syndrome
     Dosage: 2 TABLETS OF 1 MG, BID
     Route: 048
     Dates: start: 20220208

REACTIONS (2)
  - Muscle abscess [Unknown]
  - Osteomyelitis [Unknown]
